FAERS Safety Report 16676194 (Version 1)
Quarter: 2019Q3

REPORT INFORMATION
  Report Type: Report from Study
  Country: US (occurrence: US)
  Receive Date: 20190807
  Receipt Date: 20190807
  Transmission Date: 20191004
  Serious: Yes (Other)
  Sender: FDA-Public Use
  Company Number: US-ROCHE-2369497

PATIENT
  Sex: Female

DRUGS (2)
  1. AVASTIN [Suspect]
     Active Substance: BEVACIZUMAB
     Dosage: INFUSE 650MG (10MG/KG) INTRAVENOUSLY EVERY 21 DAY?VIAL
     Route: 042
  2. AVASTIN [Suspect]
     Active Substance: BEVACIZUMAB
     Indication: OVARIAN CANCER
     Dosage: INFUSE 650MG (10MG/KG) INTRAVENOUSLY EVERY 21 DAY?VIAL
     Route: 042

REACTIONS (2)
  - Hip fracture [Unknown]
  - Fall [Unknown]
